FAERS Safety Report 12609601 (Version 3)
Quarter: 2016Q3

REPORT INFORMATION
  Report Type: Spontaneous
  Country: US (occurrence: US)
  Receive Date: 20160801
  Receipt Date: 20160808
  Transmission Date: 20161109
  Serious: No
  Sender: FDA-Public Use
  Company Number: US-BEH-2016058714

PATIENT
  Sex: Female
  Weight: 85 kg

DRUGS (27)
  1. ACETAMINOPHEN. [Concomitant]
     Active Substance: ACETAMINOPHEN
  2. CELEBREX [Concomitant]
     Active Substance: CELECOXIB
  3. CYMBALTA [Concomitant]
     Active Substance: DULOXETINE HYDROCHLORIDE
  4. TIZANIDINE. [Concomitant]
     Active Substance: TIZANIDINE
  5. SAVELLA [Concomitant]
     Active Substance: MILNACIPRAN HYDROCHLORIDE
  6. DIPHENHYDRAMINE. [Concomitant]
     Active Substance: DIPHENHYDRAMINE
  7. FLONASE [Concomitant]
     Active Substance: FLUTICASONE PROPIONATE
  8. PERCOCET [Concomitant]
     Active Substance: ACETAMINOPHEN\OXYCODONE HYDROCHLORIDE
  9. COLACE [Concomitant]
     Active Substance: DOCUSATE SODIUM
  10. RESTASIS [Concomitant]
     Active Substance: CYCLOSPORINE
  11. PROZAC [Concomitant]
     Active Substance: FLUOXETINE HYDROCHLORIDE
  12. HIZENTRA [Suspect]
     Active Substance: HUMAN IMMUNOGLOBULIN G
     Indication: CHRONIC SINUSITIS
     Route: 058
  13. HIZENTRA [Suspect]
     Active Substance: HUMAN IMMUNOGLOBULIN G
     Indication: CHRONIC SINUSITIS
     Route: 058
  14. SYNTHROID [Concomitant]
     Active Substance: LEVOTHYROXINE SODIUM
  15. CALCIUM D [Concomitant]
     Active Substance: CALCIUM\VITAMIN D
  16. KLONOPIN [Concomitant]
     Active Substance: CLONAZEPAM
  17. SINGULAIR [Concomitant]
     Active Substance: MONTELUKAST SODIUM
  18. PYRIDIUM [Concomitant]
     Active Substance: PHENAZOPYRIDINE
  19. L-M-X [Concomitant]
  20. METHOTREXATE. [Concomitant]
     Active Substance: METHOTREXATE
  21. VITAMIN D3 [Concomitant]
     Active Substance: CHOLECALCIFEROL
  22. EPIPEN [Concomitant]
     Active Substance: EPINEPHRINE
  23. LYRICA [Concomitant]
     Active Substance: PREGABALIN
  24. HYDROXYCHLOROQUINE [Concomitant]
     Active Substance: HYDROXYCHLOROQUINE
  25. ENBREL [Concomitant]
     Active Substance: ETANERCEPT
  26. ALBUTEROL. [Concomitant]
     Active Substance: ALBUTEROL
  27. CONCERTA [Concomitant]
     Active Substance: METHYLPHENIDATE HYDROCHLORIDE

REACTIONS (6)
  - Infusion site nodule [Unknown]
  - Infusion site erythema [Unknown]
  - Device infusion issue [Unknown]
  - Infusion site pain [Unknown]
  - Infusion site swelling [Unknown]
  - Infusion site extravasation [Unknown]
